FAERS Safety Report 7499356-5 (Version None)
Quarter: 2011Q2

REPORT INFORMATION
  Report Type: 
  Country: None (occurrence: None)
  Receive Date: 20110524
  Receipt Date: 20110517
  Transmission Date: 20111010
  Serious: Yes (Hospitalization)
  Sender: FDA-Public Use
  Company Number: GB-SOLVAY-00311004017

PATIENT
  Sex: Male

DRUGS (1)
  1. CREON [Suspect]
     Indication: PANCREATECTOMY
     Dosage: DAILY DOSE:  UNKNOWN, ROUTE: NJ TUBE, FREQUENCY: 4 TIMES DAILY
     Route: 050

REACTIONS (3)
  - OFF LABEL USE [None]
  - DIARRHOEA [None]
  - INCISION SITE COMPLICATION [None]
